FAERS Safety Report 10227653 (Version 1)
Quarter: 2014Q2

REPORT INFORMATION
  Report Type: Spontaneous
  Country: US (occurrence: None)
  Receive Date: 20140609
  Receipt Date: 20140609
  Transmission Date: 20141212
  Serious: Yes (Other)
  Sender: FDA-Public Use
  Company Number: None

PATIENT
  Sex: Male

DRUGS (6)
  1. IMBRUVICA [Suspect]
     Indication: HODGKIN^S DISEASE
     Route: 048
     Dates: start: 20140227, end: 20140527
  2. PRAVASTATIN [Concomitant]
  3. LISINOPRIL [Concomitant]
  4. KLOR-CON [Concomitant]
  5. UNISOM [Concomitant]
  6. MULTIVITAMIN [Concomitant]

REACTIONS (2)
  - Gait disturbance [None]
  - Memory impairment [None]
